FAERS Safety Report 16277072 (Version 3)
Quarter: 2019Q3

REPORT INFORMATION
  Report Type: Spontaneous
  Country: US (occurrence: US)
  Receive Date: 20190506
  Receipt Date: 20190701
  Transmission Date: 20191004
  Serious: No
  Sender: FDA-Public Use
  Company Number: US-PFIZER INC-2019185307

PATIENT
  Age: 7 Year
  Sex: Male

DRUGS (4)
  1. GENOTROPIN [Suspect]
     Active Substance: SOMATROPIN
     Dosage: 0.8 MG, ALTERNATE DAY
     Dates: start: 20190423
  2. GENOTROPIN [Suspect]
     Active Substance: SOMATROPIN
     Dosage: 0.9 MG, DAILY
     Dates: start: 201904
  3. GENOTROPIN [Suspect]
     Active Substance: SOMATROPIN
     Dosage: 0.85 MG, DAILY
     Dates: start: 20190423
  4. GENOTROPIN [Suspect]
     Active Substance: SOMATROPIN
     Dosage: 0.9 MG, ALTERNATE DAY
     Dates: start: 20190423

REACTIONS (4)
  - Injection site extravasation [Unknown]
  - Incorrect dose administered [Unknown]
  - Wrong technique in device usage process [Unknown]
  - Swelling [Unknown]
